FAERS Safety Report 6471362-9 (Version None)
Quarter: 2009Q4

REPORT INFORMATION
  Report Type: 
  Country: None (occurrence: None)
  Receive Date: 20091203
  Receipt Date: 20080201
  Transmission Date: 20100525
  Serious: Yes (Hospitalization)
  Sender: FDA-Public Use
  Company Number: TR-ELI_LILLY_AND_COMPANY-TR200802003377

PATIENT
  Age: 59 Year
  Sex: Male
  Weight: 70 kg

DRUGS (7)
  1. HUMALOG [Suspect]
     Indication: TYPE 2 DIABETES MELLITUS
     Dosage: 10 UNITS/MORNING, 12 UNITS/EVENING AND NOON
     Route: 058
     Dates: start: 20010101
  2. HUMALOG [Suspect]
     Dosage: 12 IU, AT LUNCH
     Route: 058
  3. HUMALOG [Suspect]
     Dosage: 12 IU, EACH EVENING
     Route: 058
  4. LANTUS [Concomitant]
     Indication: TYPE 2 DIABETES MELLITUS
     Dosage: 24 UNITS/NIGHT
     Route: 058
  5. METOPROLOL TARTRATE [Concomitant]
     Indication: CARDIOVASCULAR DISORDER
     Dosage: TWICE DAILY
     Route: 048
  6. PLAVIX [Concomitant]
     Indication: CARDIOVASCULAR DISORDER
     Dosage: ONCE DAILY
     Route: 048
  7. CORASPIN [Concomitant]
     Indication: CARDIOVASCULAR DISORDER
     Dosage: ONCE DAILY
     Route: 048

REACTIONS (1)
  - VASCULAR GRAFT [None]
